FAERS Safety Report 8770578 (Version 3)
Quarter: 2012Q4

REPORT INFORMATION
  Report Type: 
  Country: BE (occurrence: BE)
  Receive Date: 20120906
  Receipt Date: 20121106
  Transmission Date: 20130627
  Serious: Yes (Death, Hospitalization)
  Sender: FDA-Public Use
  Company Number: BE-CELGENEUS-013-21880-12083046

PATIENT
  Age: 73 Year
  Sex: Female

DRUGS (8)
  1. REVLIMID [Suspect]
     Indication: MULTIPLE MYELOMA
     Dosage: 25 Milligram
     Route: 048
     Dates: start: 20120727, end: 20120802
  2. DEXAMETHASONE [Concomitant]
     Indication: MULTIPLE MYELOMA
     Dosage: 40 Milligram
     Route: 065
     Dates: start: 20120727
  3. PERINDOPRIL [Concomitant]
     Indication: HYPERTENSION ARTERIAL
     Dosage: 5 Milligram
     Route: 065
  4. AMLODIPINE [Concomitant]
     Indication: HYPERTENSION ARTERIAL
     Dosage: 5 Milligram
     Route: 065
  5. ZOLEDRONIC ACID [Concomitant]
     Indication: MULTIPLE MYELOMA
     Route: 065
     Dates: start: 201106, end: 20120727
  6. CALCIUM [Concomitant]
     Indication: MULTIPLE MYELOMA
     Route: 065
     Dates: start: 201106, end: 20120802
  7. VITAMIN D3 [Concomitant]
     Indication: MULTIPLE MYELOMA
     Route: 065
     Dates: start: 201106, end: 20120802
  8. IMMUNOGLOBULIN [Concomitant]
     Indication: HYPOGLOBULINEMIA
     Route: 065
     Dates: start: 201202, end: 20120802

REACTIONS (2)
  - Renal tubular necrosis [Not Recovered/Not Resolved]
  - Plasma cell leukaemia [Fatal]
